FAERS Safety Report 8482327-X (Version None)
Quarter: 2012Q3

REPORT INFORMATION
  Report Type: 
  Country: None (occurrence: None)
  Receive Date: 20120702
  Receipt Date: 20120622
  Transmission Date: 20120928
  Serious: Yes (Other)
  Sender: FDA-Public Use
  Company Number: US-BRISTOL-MYERS SQUIBB COMPANY-16714412

PATIENT
  Age: 26 Year
  Sex: Male

DRUGS (4)
  1. CLONAZEPAM [Concomitant]
  2. ABILIFY [Suspect]
     Dates: start: 20120612
  3. INDERAL [Concomitant]
  4. LUVOX [Concomitant]

REACTIONS (1)
  - MANIA [None]
